FAERS Safety Report 25814613 (Version 1)
Quarter: 2025Q3

REPORT INFORMATION
  Report Type: Spontaneous
  Country: AU (occurrence: AU)
  Receive Date: 20250917
  Receipt Date: 20250917
  Transmission Date: 20251020
  Serious: Yes (Other)
  Sender: NOVARTIS
  Company Number: AU-002147023-NVSC2025AU143218

PATIENT
  Age: 45 Year
  Sex: Female

DRUGS (2)
  1. GLIVEC [Suspect]
     Active Substance: IMATINIB MESYLATE
     Indication: Chronic myeloid leukaemia
     Route: 065
  2. INTERFERON [Suspect]
     Active Substance: INTERFERON
     Indication: Chronic myeloid leukaemia
     Route: 065

REACTIONS (2)
  - Malignant melanoma [Unknown]
  - Adverse drug reaction [Unknown]
